FAERS Safety Report 6956540-4 (Version None)
Quarter: 2010Q3

REPORT INFORMATION
  Report Type: 
  Country: None (occurrence: None)
  Receive Date: 20100826
  Receipt Date: 20100818
  Transmission Date: 20110219
  Serious: Yes (Life-Threatening, Other)
  Sender: FDA-Public Use
  Company Number: 017416

PATIENT
  Sex: Male

DRUGS (4)
  1. KEPPRA [Suspect]
     Dosage: (1500 MG, 500 MG TABLETS ORAL)
     Route: 048
     Dates: start: 20100601, end: 20100729
  2. TEMODAL [Suspect]
     Indication: GLIOBLASTOMA
     Dosage: (145 MG, FIRST DOSE OF 100 MG, SECOND DOSE OF 40 MG AND THIRD DOSE OF 5 MG ORAL)
     Route: 048
     Dates: start: 20100615, end: 20100725
  3. SOLDESAM /00016002/ [Concomitant]
  4. LUCEN /01479301/ [Concomitant]

REACTIONS (1)
  - PANCYTOPENIA [None]
